FAERS Safety Report 13863117 (Version 2)
Quarter: 2018Q4

REPORT INFORMATION
  Report Type: Report from Study
  Country: US (occurrence: US)
  Receive Date: 20170814
  Receipt Date: 20181218
  Transmission Date: 20190204
  Serious: No
  Sender: FDA-Public Use
  Company Number: PHEH2017US025357

PATIENT
  Sex: Female

DRUGS (2)
  1. OXCARBAZEPINE SANDOZ [Suspect]
     Active Substance: OXCARBAZEPINE
     Indication: LIMB DISCOMFORT
     Route: 065
  2. GILENYA [Suspect]
     Active Substance: FINGOLIMOD HYDROCHLORIDE
     Indication: MULTIPLE SCLEROSIS
     Dosage: 0.5 MG, QD
     Route: 048
     Dates: start: 20170216

REACTIONS (3)
  - Alopecia [Unknown]
  - Limb discomfort [Unknown]
  - Drug ineffective [Unknown]

NARRATIVE: CASE EVENT DATE: 2017
